FAERS Safety Report 14679342 (Version 4)
Quarter: 2018Q4

REPORT INFORMATION
  Report Type: Spontaneous
  Country: US (occurrence: US)
  Receive Date: 20180326
  Receipt Date: 20181219
  Transmission Date: 20190204
  Serious: Yes (Hospitalization)
  Sender: FDA-Public Use
  Company Number: US-PFIZER INC-2018122943

PATIENT
  Age: 79 Year
  Sex: Female
  Weight: 100 kg

DRUGS (2)
  1. IBRANCE [Suspect]
     Active Substance: PALBOCICLIB
     Dosage: 125 MG, CYCLIC [D 1-21 Q 28 DAYS]
     Route: 048
     Dates: start: 20180301
  2. IBRANCE [Suspect]
     Active Substance: PALBOCICLIB
     Indication: BREAST CANCER METASTATIC
     Dosage: 125 MG, CYCLIC [D 1-21 Q 28 DAYS]
     Route: 048
     Dates: start: 20180301

REACTIONS (9)
  - Feeding disorder [Unknown]
  - Joint effusion [Unknown]
  - Cystitis [Unknown]
  - Malaise [Unknown]
  - Back pain [Recovering/Resolving]
  - Bone pain [Recovering/Resolving]
  - Dizziness [Unknown]
  - Musculoskeletal stiffness [Recovering/Resolving]
  - Ligament sprain [Unknown]

NARRATIVE: CASE EVENT DATE: 2018
